FAERS Safety Report 9252453 (Version 1)
Quarter: 2013Q2

REPORT INFORMATION
  Report Type: Spontaneous
  Country: AU (occurrence: AU)
  Receive Date: 20130424
  Receipt Date: 20130424
  Transmission Date: 20140414
  Serious: Yes (Other)
  Sender: FDA-Public Use
  Company Number: AU-B.I. PHARMACEUTICALS,INC./RIDGEFIELD-2013-BI-10547YA

PATIENT
  Sex: Male

DRUGS (2)
  1. TAMSULOSINA [Suspect]
     Route: 048
  2. VIAGRA (SILDENAFIL CITRATE) [Suspect]
     Route: 065

REACTIONS (1)
  - Adverse event [Unknown]
